FAERS Safety Report 4360358-9 (Version None)
Quarter: 2004Q2

REPORT INFORMATION
  Report Type: 
  Country: None (occurrence: None)
  Receive Date: 20040519
  Receipt Date: 20040510
  Transmission Date: 20050107
  Serious: Yes (Death, Hospitalization, Other)
  Sender: FDA-Public Use
  Company Number: DE-BRISTOL-MYERS SQUIBB COMPANY-12586038

PATIENT
  Age: 74 Year
  Sex: Male

DRUGS (7)
  1. GLUCOPHAGE [Suspect]
     Indication: DIABETES MELLITUS
     Route: 048
     Dates: end: 20031212
  2. AMARYL [Concomitant]
     Indication: DIABETES MELLITUS
     Route: 048
     Dates: end: 20031212
  3. AQUAPHOR [Concomitant]
     Indication: HYPERTENSION
     Route: 048
     Dates: end: 20031212
  4. ASPIRIN [Concomitant]
     Indication: MYOCARDIAL ISCHAEMIA
     Route: 048
     Dates: end: 20031212
  5. BISOPROLOL [Concomitant]
     Indication: MYOCARDIAL ISCHAEMIA
     Route: 048
     Dates: end: 20031212
  6. COVERSUM [Concomitant]
     Indication: HYPERTENSION
     Route: 048
     Dates: end: 20031212
  7. CYNT [Concomitant]
     Indication: HYPERTENSION
     Route: 048
     Dates: end: 20031212

REACTIONS (13)
  - CARDIAC FAILURE [None]
  - CARDIOGENIC SHOCK [None]
  - DIABETIC NEPHROPATHY [None]
  - DYSPNOEA EXACERBATED [None]
  - EPISTAXIS [None]
  - LACTIC ACIDOSIS [None]
  - LUNG INFECTION [None]
  - PNEUMONIA BACTERIAL [None]
  - RENAL FAILURE [None]
  - RESPIRATORY FAILURE [None]
  - SHOCK [None]
  - TACHYARRHYTHMIA [None]
  - VISUAL DISTURBANCE [None]
